FAERS Safety Report 10870457 (Version 2)
Quarter: 2015Q1

REPORT INFORMATION
  Report Type: Spontaneous
  Country: JP (occurrence: JP)
  Receive Date: 20150226
  Receipt Date: 20150325
  Transmission Date: 20150721
  Serious: Yes (Other)
  Sender: FDA-Public Use
  Company Number: JP-SA-2015SA022913

PATIENT
  Age: 79 Year
  Sex: Female

DRUGS (3)
  1. MYSLEE [Suspect]
     Active Substance: ZOLPIDEM TARTRATE
     Route: 048
     Dates: start: 20120124, end: 201501
  2. DEPAS [Concomitant]
     Active Substance: ETIZOLAM
     Route: 048
  3. DORAL [Suspect]
     Active Substance: QUAZEPAM
     Dosage: STRENGTH:15 MG
     Route: 048
     Dates: start: 20150131

REACTIONS (2)
  - Dementia [Not Recovered/Not Resolved]
  - Eye disorder [Not Recovered/Not Resolved]

NARRATIVE: CASE EVENT DATE: 2015
